FAERS Safety Report 4922528-8 (Version None)
Quarter: 2006Q1

REPORT INFORMATION
  Report Type: 
  Country: None (occurrence: None)
  Receive Date: 20060224
  Receipt Date: 20060213
  Transmission Date: 20060701
  Serious: Yes (Other)
  Sender: FDA-Public Use
  Company Number: BE-ROCHE-436229

PATIENT
  Sex: Female

DRUGS (2)
  1. BONIVA [Suspect]
     Route: 042
     Dates: start: 20050115
  2. ARIMIDEX [Concomitant]
     Indication: BREAST CANCER
     Route: 048
     Dates: start: 20051215

REACTIONS (3)
  - OEDEMA [None]
  - PAIN IN EXTREMITY [None]
  - URTICARIA [None]
